FAERS Safety Report 8902633 (Version 2)
Quarter: 2012Q4

REPORT INFORMATION
  Report Type: 
  Country: FR (occurrence: FR)
  Receive Date: 20121112
  Receipt Date: 20121126
  Transmission Date: 20130627
  Serious: No
  Sender: FDA-Public Use
  Company Number: FR-JNJFOC-20121017046

PATIENT
  Sex: Male

DRUGS (3)
  1. DUROGESIC [Suspect]
     Indication: HERPES ZOSTER
     Route: 062
     Dates: start: 20121023, end: 201210
  2. DUROGESIC [Suspect]
     Indication: HERPES ZOSTER
     Dosage: initiation dosage
     Route: 062
     Dates: end: 201210
  3. DUROGESIC [Suspect]
     Indication: HERPES ZOSTER
     Dosage: current dose unknown
     Route: 062
     Dates: start: 201210

REACTIONS (5)
  - Somnolence [Recovered/Resolved]
  - Confusional state [Recovered/Resolved]
  - Adverse event [Recovered/Resolved]
  - Incorrect dose administered [Unknown]
  - Product quality issue [Unknown]
